FAERS Safety Report 5878058-2 (Version None)
Quarter: 2008Q3

REPORT INFORMATION
  Report Type: 
  Country: None (occurrence: None)
  Receive Date: 20080909
  Receipt Date: 20080909
  Transmission Date: 20090109
  Serious: No
  Sender: FDA-Public Use
  Company Number: None

PATIENT
  Age: 53 Year
  Sex: Male
  Weight: 126.55 kg

DRUGS (1)
  1. LIDOCAINE [Suspect]
     Indication: PAIN
     Dosage: 1 PATCH EVERY DAY TOP
     Route: 061
     Dates: start: 20080822, end: 20080905

REACTIONS (3)
  - DYSPNOEA [None]
  - HYPERHIDROSIS [None]
  - PYREXIA [None]
